FAERS Safety Report 8737524 (Version 3)
Quarter: 2013Q1

REPORT INFORMATION
  Report Type: Report from Study
  Country: JP (occurrence: JP)
  Receive Date: 20120822
  Receipt Date: 20130206
  Transmission Date: 20140127
  Serious: Yes (Death, Life-Threatening, Other)
  Sender: FDA-Public Use
  Company Number: JP-009507513-1208JPN001469

PATIENT
  Age: 58 Year
  Sex: Female

DRUGS (22)
  1. TEMODAL [Suspect]
     Indication: GLIOBLASTOMA MULTIFORME
     Route: 041
     Dates: start: 20100906, end: 20100910
  2. TEMODAL [Suspect]
     Indication: GLIOBLASTOMA MULTIFORME
     Dosage: DAILY DOSAGE UNKNOWN
     Route: 048
     Dates: start: 20100712, end: 20100810
  3. TEMODAL [Suspect]
     Dosage: 240 MG/M2, QD
     Route: 048
     Dates: start: 20101004, end: 20101008
  4. TEMODAL [Suspect]
     Dosage: 240 MG/M2, QD
     Route: 048
     Dates: start: 20101101, end: 20101105
  5. TEMODAL [Suspect]
     Dosage: 240 MG/M2, QD
     Route: 048
     Dates: start: 20101129, end: 20101203
  6. TEMODAL [Suspect]
     Dosage: 240 MG/M2, QD
     Route: 048
     Dates: start: 20101227, end: 20101231
  7. TEMODAL [Suspect]
     Dosage: 240 MG/M2, QD
     Route: 048
     Dates: start: 20110121, end: 20110125
  8. TEMODAL [Suspect]
     Dosage: 240 MG/M2, QD
     Route: 048
     Dates: start: 20110218, end: 20110222
  9. GRANISETRON [Concomitant]
     Indication: PROPHYLAXIS
     Dosage: DAIY DOSAGE UNKNOWN
     Route: 042
     Dates: start: 20100906, end: 20100910
  10. FERON [Concomitant]
     Dosage: DAIY DOSAGE UNKNOWN
     Route: 041
     Dates: start: 20101014, end: 20110203
  11. GLYMACKEN [Concomitant]
     Dosage: DAILY DOSAGE UNKNOWN
     Route: 041
     Dates: start: 20110221, end: 20110314
  12. RINDERON (BETAMETHASONE SODIUM PHOSPHATE) [Concomitant]
     Dosage: DAIY DOSAGE UNKNOWN
     Route: 041
     Dates: start: 20110221, end: 20110228
  13. MAGMITT [Concomitant]
     Dosage: DAIY DOSAGE UNKNOWN
     Route: 048
     Dates: end: 20110501
  14. HOCHU-EKKI-TO [Concomitant]
     Dosage: DAIY DOSAGE UNKNOWN
     Route: 048
     Dates: start: 20100811, end: 20110407
  15. HOCHU-EKKI-TO [Concomitant]
     Dosage: DAIY DOSAGE UNKNOWN
     Route: 048
     Dates: start: 20100903, end: 20101222
  16. GAMOFA D [Concomitant]
     Dosage: DAILY DOSAGE UNKNOWN
     Route: 048
     Dates: end: 20110501
  17. RINDERON (BETAMETHASONE) [Concomitant]
     Dosage: DAIY DOSAGE UNKNOWN
     Route: 048
     Dates: start: 20100817, end: 20100930
  18. ISOBIDE [Concomitant]
     Dosage: DAILY DOSAGE UNKNOWN
     Route: 048
     Dates: start: 20100903, end: 20110501
  19. PREDNISOLONE [Concomitant]
     Dosage: DAILY DOSAGE UNKNOWN
     Route: 048
     Dates: start: 20100930, end: 20110501
  20. GOREI-SAN [Concomitant]
     Dosage: UNK
     Route: 048
     Dates: start: 20100903, end: 20101222
  21. PRIDOL [Concomitant]
     Indication: PROPHYLAXIS
     Dosage: UNK
     Route: 042
     Dates: start: 20110511, end: 20110512
  22. DOPAMINE HYDROCHLORIDE [Concomitant]
     Indication: PROPHYLAXIS
     Dosage: DOSAGE U DURING A DAY
     Route: 041
     Dates: start: 20110511, end: 20110516

REACTIONS (9)
  - Disease progression [Fatal]
  - C-reactive protein increased [Not Recovered/Not Resolved]
  - Hepatic function abnormal [Recovered/Resolved]
  - Nasopharyngitis [Recovered/Resolved]
  - Pneumonia [Recovered/Resolved]
  - Herpes zoster [Recovered/Resolved]
  - Vomiting [Not Recovered/Not Resolved]
  - Constipation [Not Recovered/Not Resolved]
  - Lymphocyte count decreased [Unknown]
